FAERS Safety Report 8513570-9 (Version None)
Quarter: 2012Q3

REPORT INFORMATION
  Report Type: 
  Country: None (occurrence: None)
  Receive Date: 20120717
  Receipt Date: 20120709
  Transmission Date: 20120928
  Serious: Yes (Other)
  Sender: FDA-Public Use
  Company Number: JP-AMGEN-JPNSP2012042577

PATIENT

DRUGS (2)
  1. RHEUMATREX [Suspect]
     Dosage: 8 MG, WEEKLY
     Route: 048
  2. ENBREL [Suspect]
     Indication: PRODUCT USED FOR UNKNOWN INDICATION
     Dosage: 25 MG, WEEKLY
     Route: 058
     Dates: start: 20100101

REACTIONS (1)
  - PANCREATITIS ACUTE [None]
